FAERS Safety Report 7799224-5 (Version None)
Quarter: 2011Q4

REPORT INFORMATION
  Report Type: 
  Country: None (occurrence: None)
  Receive Date: 20111006
  Receipt Date: 20111004
  Transmission Date: 20120403
  Serious: Yes (Death, Other)
  Sender: FDA-Public Use
  Company Number: NZ-B.I. PHARMACEUTICALS,INC./RIDGEFIELD-2011-AU-00610AU

PATIENT
  Age: 82 Year
  Sex: Female

DRUGS (9)
  1. PRADAXA [Suspect]
     Indication: ATRIAL FIBRILLATION
     Dosage: 220 MG
     Dates: start: 20110716, end: 20110719
  2. ACETAMINOPHEN [Concomitant]
  3. ALLOPURINOL [Concomitant]
     Dates: start: 20110630
  4. OMEPRAZOLE [Concomitant]
     Dates: start: 20110630
  5. CELIPROLOL [Concomitant]
     Dates: start: 20110630
  6. ZOPICLONE [Concomitant]
     Dosage: 1 NOCTE PRN
     Dates: start: 20110630
  7. FUROSEMIDE [Concomitant]
  8. WARFARIN SODIUM [Concomitant]
  9. LEVOTHYROXINE SODIUM [Concomitant]
     Dates: start: 20110630

REACTIONS (4)
  - DISORIENTATION [None]
  - URINARY TRACT INFECTION [None]
  - CONFUSIONAL STATE [None]
  - CEREBRAL ARTERY EMBOLISM [None]
